FAERS Safety Report 4512433-3 (Version None)
Quarter: 2004Q4

REPORT INFORMATION
  Report Type: 
  Country: None (occurrence: None)
  Receive Date: 20041124
  Receipt Date: 20041110
  Transmission Date: 20050328
  Serious: Yes (Hospitalization, Other)
  Sender: FDA-Public Use
  Company Number: USA041183732

PATIENT
  Sex: Male
  Weight: 116 kg

DRUGS (2)
  1. HUMULIN N [Suspect]
     Indication: DIABETES MELLITUS
     Dosage: 45 U DAY
     Dates: start: 19890101
  2. HUMULIN R [Suspect]
     Indication: DIABETES MELLITUS
     Dates: start: 19890101

REACTIONS (12)
  - AGITATION [None]
  - BLOOD GLUCOSE DECREASED [None]
  - BLOOD GLUCOSE INCREASED [None]
  - COMA [None]
  - HYPERHIDROSIS [None]
  - IMPAIRED HEALING [None]
  - LEG AMPUTATION [None]
  - LOWER LIMB FRACTURE [None]
  - MEDICATION ERROR [None]
  - POOR PERIPHERAL CIRCULATION [None]
  - SLEEP DISORDER [None]
  - WEIGHT INCREASED [None]
